FAERS Safety Report 4896774-6 (Version None)
Quarter: 2006Q1

REPORT INFORMATION
  Report Type: 
  Country: None (occurrence: None)
  Receive Date: 20060126
  Receipt Date: 20060117
  Transmission Date: 20060701
  Serious: Yes (Other)
  Sender: FDA-Public Use
  Company Number: 2005159153

PATIENT
  Age: 30 Year
  Sex: Female
  Weight: 46 kg

DRUGS (6)
  1. RELPAX [Suspect]
     Indication: MIGRAINE
     Dosage: 160 TO 200 MILLIGRAMS (40 MG, TWO TO THREE INTAKES), ORAL
     Route: 048
     Dates: start: 20020821
  2. CODEINE (CODEINE) [Suspect]
     Indication: MIGRAINE
  3. OXETORONE FUMARATE (OXETORONE FUMARATE) [Concomitant]
  4. ACETAMINOPHEN [Concomitant]
  5. CONTRACEPTIVE, (CONTRACEPTIVE,) [Concomitant]
  6. ALL OTHER THERAPEUTIC PRODUCTS (ALL OTHER THERAPEUTIC PRODUCTS) [Concomitant]

REACTIONS (4)
  - ANXIETY [None]
  - DRUG ABUSER [None]
  - DRUG WITHDRAWAL SYNDROME [None]
  - GAMMA-GLUTAMYLTRANSFERASE INCREASED [None]
